FAERS Safety Report 21436583 (Version 6)
Quarter: 2023Q1

REPORT INFORMATION
  Report Type: Spontaneous
  Country: DE (occurrence: DE)
  Receive Date: 20221010
  Receipt Date: 20230127
  Transmission Date: 20230418
  Serious: Yes (Other)
  Sender: FDA-Public Use
  Company Number: DE-EMA-DD-20220929-116353-152047

PATIENT
  Age: 29 Year
  Sex: Male

DRUGS (19)
  1. LENALIDOMIDE [Suspect]
     Active Substance: LENALIDOMIDE
     Indication: Immunomodulatory therapy
     Dosage: 300 MILLIGRAM, QD
     Route: 065
  2. LENALIDOMIDE [Suspect]
     Active Substance: LENALIDOMIDE
     Dosage: UNK
     Route: 065
     Dates: start: 2021
  3. ZOLEDRONIC ACID [Suspect]
     Active Substance: ZOLEDRONIC ACID
     Indication: Pain
     Dosage: UNK, EVERY FOUR WEEKS
     Route: 042
  4. ZOLEDRONIC ACID [Suspect]
     Active Substance: ZOLEDRONIC ACID
     Indication: Analgesic therapy
     Dosage: UNK
     Route: 065
     Dates: start: 2021
  5. PREGABALIN [Suspect]
     Active Substance: PREGABALIN
     Indication: Analgesic therapy
     Dosage: 300 MILLIGRAM, QD
     Route: 065
  6. PREGABALIN [Suspect]
     Active Substance: PREGABALIN
     Dosage: 50 MILLIGRAM, TID, 50 MG, QD (THREE TIMES A DAY; 50-50-150 MG)
     Route: 065
     Dates: end: 2019
  7. PREGABALIN [Suspect]
     Active Substance: PREGABALIN
     Dosage: 150 MILLIGRAM, QD, 150 MG OF PREGABALIN IN THE MORNING AND IN THE EVENING
     Route: 065
     Dates: start: 2019
  8. AMITRIPTYLINE [Suspect]
     Active Substance: AMITRIPTYLINE
     Indication: Pain
     Dosage: 25 MILLIGRAM, QD (AT NIGHT)
     Route: 065
  9. MORPHINE SULFATE [Suspect]
     Active Substance: MORPHINE SULFATE
     Indication: Pain
     Dosage: 10 MILLIGRAM, REQUIRED BETWEEN SIX AND EIGHT TIMES DAILY, OPIOID THERAPY
     Route: 048
  10. HYDROMORPHONE [Suspect]
     Active Substance: HYDROMORPHONE
     Indication: Pain
     Dosage: 16 MILLIGRAM, QD, 16 MG HYDROMORPHONE IN A 24-HOUR GALENIC/ EVERY 24 HOURS
     Route: 065
     Dates: start: 2017
  11. DICLOFENAC [Suspect]
     Active Substance: DICLOFENAC
     Indication: Bone pain
     Dosage: UNK, NON-STEROIDAL ANTI-INFLAMMATORY DRUG DICLOFENAC
     Route: 065
  12. DICLOFENAC [Suspect]
     Active Substance: DICLOFENAC
     Indication: Pain
     Dosage: UNK
     Route: 065
  13. IBUPROFEN [Suspect]
     Active Substance: IBUPROFEN
     Indication: Bone pain
     Dosage: UNK, PRN, THERAPY WITH IBUPROFEN IN UNKNOWN DOSAGE WHENEVER AFFLICTED WITH BONE
     Route: 065
     Dates: start: 2016
  14. IBUPROFEN [Suspect]
     Active Substance: IBUPROFEN
     Dosage: UNK, PRN, FROM : //2016 TO : WHENEVER AFFLICTED WITH BONE
     Route: 065
     Dates: start: 2016
  15. OXYCODONE [Suspect]
     Active Substance: OXYCODONE
     Indication: Analgesic therapy
     Dosage: TID (30-30-40 MG) UNK, (ORAL OPIOID THERAPY WITH PROLONGED-RELEASE OXYCODONE)
     Route: 048
  16. OXYCODONE [Suspect]
     Active Substance: OXYCODONE
     Dosage: 100 MG, Q8H
     Route: 048
  17. HERBALS\TETRAHYDROCANNABINOL UNSPECIFIED [Suspect]
     Active Substance: HERBALS\TETRAHYDROCANNABINOL UNSPECIFIED
     Indication: Pain
     Dosage: 2.5 MG/G, EVERY 5 DAYS, 2.5 MG, QD (A DAILY DOSE OF 2.5-2.5-7.5 MG THC 10 ADMINISTERED)
     Route: 048
     Dates: start: 2022
  18. AMBROXOL [Suspect]
     Active Substance: AMBROXOL
     Indication: Arthralgia
     Dosage: UNK, (LOCAL THERAPY ON THE SHOULDER)
     Route: 065
     Dates: end: 2019
  19. AMBROXOL [Suspect]
     Active Substance: AMBROXOL
     Dosage: UNK
     Route: 065
     Dates: start: 2019

REACTIONS (7)
  - Sleep disorder [Recovered/Resolved]
  - Condition aggravated [Recovered/Resolved]
  - Depression [Recovered/Resolved]
  - Decreased appetite [Recovered/Resolved]
  - Drug ineffective [Unknown]
  - Somnolence [Recovered/Resolved]
  - Fatigue [Not Recovered/Not Resolved]

NARRATIVE: CASE EVENT DATE: 20170101
